FAERS Safety Report 10052328 (Version 1)
Quarter: 2014Q2

REPORT INFORMATION
  Report Type: Spontaneous
  Country: AU (occurrence: AU)
  Receive Date: 20140402
  Receipt Date: 20140402
  Transmission Date: 20141212
  Serious: Yes (Hospitalization)
  Sender: FDA-Public Use
  Company Number: AU-ABBVIE-14P-008-1217104-00

PATIENT
  Age: 29 Year
  Sex: 0

DRUGS (1)
  1. HUMIRA [Suspect]
     Indication: CROHN^S DISEASE

REACTIONS (6)
  - Lethargy [Unknown]
  - Pyrexia [Unknown]
  - Chills [Unknown]
  - Chills [Unknown]
  - Headache [Unknown]
  - Listeriosis [Unknown]
